FAERS Safety Report 20536294 (Version 1)
Quarter: 2022Q1

REPORT INFORMATION
  Report Type: Spontaneous
  Country: US (occurrence: US)
  Receive Date: 20220302
  Receipt Date: 20220302
  Transmission Date: 20220423
  Serious: No
  Sender: FDA-Public Use
  Company Number: US-SANOFI-00988922

PATIENT
  Age: 62 Year
  Sex: Female

DRUGS (1)
  1. LANTUS SOLOSTAR [Suspect]
     Active Substance: INSULIN GLARGINE
     Indication: Type 2 diabetes mellitus
     Dosage: 115 IU, QD
     Route: 058

REACTIONS (5)
  - Eye disorder [Unknown]
  - Visual impairment [Unknown]
  - Injection site pain [Unknown]
  - Wrong technique in device usage process [Unknown]
  - Product prescribing error [Unknown]
